FAERS Safety Report 19485826 (Version 4)
Quarter: 2021Q3

REPORT INFORMATION
  Report Type: Spontaneous
  Country: ES (occurrence: ES)
  Receive Date: 20210702
  Receipt Date: 20210901
  Transmission Date: 20211014
  Serious: Yes (Other)
  Sender: FDA-Public Use
  Company Number: ES-REGENERON PHARMACEUTICALS, INC.-2021-64556

PATIENT

DRUGS (3)
  1. EYLEA [Suspect]
     Active Substance: AFLIBERCEPT
     Dosage: UNK, ONCE, BOTH EYES
     Dates: start: 20210624, end: 20210624
  2. EYLEA [Suspect]
     Active Substance: AFLIBERCEPT
     Dosage: LAST DOSE TAKEN BEFORE EVENT
     Dates: start: 20210531, end: 20210531
  3. EYLEA [Suspect]
     Active Substance: AFLIBERCEPT
     Indication: DIABETIC RETINAL OEDEMA
     Dosage: BOTH EYES, TOTAL OF 30 (RIGHT EYE) AND 13 (LEFT EYE) DOSES TAKEN

REACTIONS (4)
  - Intraocular pressure increased [Recovered/Resolved]
  - Device use issue [Unknown]
  - Wrong technique in product usage process [Unknown]
  - Amaurosis [Recovered/Resolved]

NARRATIVE: CASE EVENT DATE: 20210624
